FAERS Safety Report 5262164-X (Version None)
Quarter: 2007Q1

REPORT INFORMATION
  Report Type: 
  Country: None (occurrence: None)
  Receive Date: 20070308
  Receipt Date: 20070222
  Transmission Date: 20070707
  Serious: Yes (Hospitalization)
  Sender: FDA-Public Use
  Company Number: MEDI-0005301

PATIENT
  Age: 8 Month

DRUGS (4)
  1. SYNAGIS [Suspect]
     Indication: ANTIVIRAL PROPHYLAXIS
     Dosage: 100 MG, INTRAMUSCULAR
     Route: 030
     Dates: start: 20051005, end: 20051219
  2. SYNAGIS [Suspect]
     Indication: ANTIVIRAL PROPHYLAXIS
     Dosage: 100 MG, INTRAMUSCULAR
     Route: 030
     Dates: start: 20051005
  3. SYNAGIS [Suspect]
     Indication: ANTIVIRAL PROPHYLAXIS
     Dosage: 100 MG, INTRAMUSCULAR
     Route: 030
     Dates: start: 20051028
  4. SYNAGIS [Suspect]
     Indication: ANTIVIRAL PROPHYLAXIS
     Dosage: 100 MG, INTRAMUSCULAR
     Route: 030
     Dates: start: 20051118

REACTIONS (3)
  - BRONCHIOLITIS [None]
  - DRUG INEFFECTIVE [None]
  - RESPIRATORY SYNCYTIAL VIRUS INFECTION [None]
